FAERS Safety Report 16065012 (Version 2)
Quarter: 2019Q2

REPORT INFORMATION
  Report Type: Report from Study
  Country: None (occurrence: US)
  Receive Date: 20190313
  Receipt Date: 20190409
  Transmission Date: 20190711
  Serious: Yes (Other)
  Sender: FDA-Public Use
  Company Number: US-ABBVIE-19K-163-2696018-00

PATIENT
  Sex: Male

DRUGS (4)
  1. HUMIRA [Suspect]
     Active Substance: ADALIMUMAB
     Indication: PSORIATIC ARTHROPATHY
     Dosage: INJECT 2 PENS ON DAY 15?ON 01 FEB 19 MAINTENANCE DOSE WAS ORDERED: INJECT 1 PEN 40MG/0.8ML
     Route: 058
     Dates: start: 20190221
  2. HUMIRA [Suspect]
     Active Substance: ADALIMUMAB
     Indication: PSORIASIS
     Dosage: ON 06 JAN 19 THE STARTER KIT WAS ORDERED: INJECT 4 PENS ON DAY 1
     Route: 058
     Dates: start: 20190207, end: 20190207
  3. HUMIRA [Suspect]
     Active Substance: ADALIMUMAB
     Indication: PSORIASIS
     Dosage: INJECT 1 PEN
     Route: 058
     Dates: start: 20190227
  4. HUMIRA [Suspect]
     Active Substance: ADALIMUMAB
     Indication: RHEUMATOID ARTHRITIS

REACTIONS (7)
  - Cerebral vasoconstriction [Unknown]
  - Hypoaesthesia [Recovering/Resolving]
  - Drug ineffective [Not Recovered/Not Resolved]
  - Gait disturbance [Unknown]
  - Skin plaque [Not Recovered/Not Resolved]
  - Mental impairment [Unknown]
  - Pruritus [Recovering/Resolving]

NARRATIVE: CASE EVENT DATE: 2019
